FAERS Safety Report 24025732 (Version 3)
Quarter: 2024Q3

REPORT INFORMATION
  Report Type: Report from Study
  Country: CN (occurrence: CN)
  Receive Date: 20240628
  Receipt Date: 20240710
  Transmission Date: 20241017
  Serious: No
  Sender: ROCHE
  Company Number: CN-ROCHE-3305813

PATIENT
  Age: 67 Year
  Sex: Male
  Weight: 92.0 kg

DRUGS (37)
  1. ALECTINIB [Suspect]
     Active Substance: ALECTINIB
     Indication: Lung cancer metastatic
     Route: 048
     Dates: start: 20211028
  2. BICYCLOL [Concomitant]
     Active Substance: BICYCLOL
     Route: 048
     Dates: start: 202111
  3. ESTAZOLAM [Concomitant]
     Active Substance: ESTAZOLAM
     Route: 048
     Dates: start: 20211124, end: 20211130
  4. ZOLEDRONIC ACID [Concomitant]
     Active Substance: ZOLEDRONIC ACID
     Route: 042
     Dates: start: 20211124, end: 20211124
  5. ZOLEDRONIC ACID [Concomitant]
     Active Substance: ZOLEDRONIC ACID
     Route: 042
     Dates: start: 20220215, end: 20220215
  6. ZOLEDRONIC ACID [Concomitant]
     Active Substance: ZOLEDRONIC ACID
     Route: 042
     Dates: start: 20220510, end: 20220510
  7. ZOLEDRONIC ACID [Concomitant]
     Active Substance: ZOLEDRONIC ACID
     Route: 042
     Dates: start: 20220705, end: 20220705
  8. ZOLEDRONIC ACID [Concomitant]
     Active Substance: ZOLEDRONIC ACID
     Route: 042
     Dates: start: 20230516, end: 20230516
  9. ZOLEDRONIC ACID [Concomitant]
     Active Substance: ZOLEDRONIC ACID
     Route: 042
     Dates: start: 20230620, end: 20230620
  10. RIVAROXABAN [Concomitant]
     Active Substance: RIVAROXABAN
     Route: 048
     Dates: start: 20211124, end: 20211207
  11. RIVAROXABAN [Concomitant]
     Active Substance: RIVAROXABAN
     Route: 048
     Dates: start: 20220215, end: 20220301
  12. RIVAROXABAN [Concomitant]
     Active Substance: RIVAROXABAN
     Route: 048
     Dates: start: 20220510, end: 20220523
  13. RIVAROXABAN [Concomitant]
     Active Substance: RIVAROXABAN
     Route: 048
     Dates: start: 20220705, end: 20220718
  14. RIVAROXABAN [Concomitant]
     Active Substance: RIVAROXABAN
     Route: 048
     Dates: start: 202208
  15. OXYCODONE HYDROCHLORIDE [Concomitant]
     Active Substance: OXYCODONE HYDROCHLORIDE
     Route: 048
     Dates: start: 20220215, end: 20220221
  16. OXYCODONE HYDROCHLORIDE [Concomitant]
     Active Substance: OXYCODONE HYDROCHLORIDE
     Route: 048
     Dates: start: 20220705, end: 20220711
  17. OXYCODONE HYDROCHLORIDE [Concomitant]
     Active Substance: OXYCODONE HYDROCHLORIDE
     Route: 048
     Dates: start: 20220510, end: 20220517
  18. OXYCODONE HYDROCHLORIDE [Concomitant]
     Active Substance: OXYCODONE HYDROCHLORIDE
     Route: 048
     Dates: start: 20220825, end: 20220831
  19. OXYCODONE HYDROCHLORIDE [Concomitant]
     Active Substance: OXYCODONE HYDROCHLORIDE
     Route: 048
     Dates: start: 20230516, end: 20230522
  20. LACTULOSE [Concomitant]
     Active Substance: LACTULOSE
     Route: 048
     Dates: start: 20220215, end: 20220224
  21. LACTULOSE [Concomitant]
     Active Substance: LACTULOSE
     Route: 048
     Dates: start: 20220826, end: 20220901
  22. BRIGATINIB [Concomitant]
     Active Substance: BRIGATINIB
     Dates: start: 20220822, end: 20220822
  23. BRIGATINIB [Concomitant]
     Active Substance: BRIGATINIB
     Dates: start: 20220822, end: 20230724
  24. OXYGEN [Concomitant]
     Active Substance: OXYGEN
     Route: 066
     Dates: start: 20211124, end: 20211125
  25. OMEPRAZOLE [Concomitant]
     Active Substance: OMEPRAZOLE
     Route: 050
     Dates: start: 20220728, end: 20220728
  26. ERTAPENEM [Concomitant]
     Active Substance: ERTAPENEM
     Route: 050
     Dates: start: 20220728, end: 20220728
  27. GLUTATHIONE [Concomitant]
     Active Substance: GLUTATHIONE
     Route: 050
     Dates: start: 20220728, end: 20220728
  28. HERBALS [Concomitant]
     Active Substance: HERBALS
     Route: 050
     Dates: start: 20220728, end: 20220728
  29. ASPIRIN DL-LYSINE [Concomitant]
     Active Substance: ASPIRIN DL-LYSINE
     Route: 050
     Dates: start: 20220728, end: 20220728
  30. CANDESARTAN [Concomitant]
     Active Substance: CANDESARTAN
     Route: 048
  31. CONFORMAL [Concomitant]
     Route: 065
     Dates: start: 2017
  32. ISOSORBIDE DINITRATE [Concomitant]
     Active Substance: ISOSORBIDE DINITRATE
     Route: 065
  33. ASPIRIN [Concomitant]
     Active Substance: ASPIRIN
     Route: 065
  34. IBUPROFEN [Concomitant]
     Active Substance: IBUPROFEN
     Dosage: 1 CAPSULE
     Route: 048
     Dates: start: 20230722, end: 20230722
  35. ACETAMINOPHEN [Concomitant]
     Active Substance: ACETAMINOPHEN
     Dates: start: 20230722, end: 20230722
  36. PHOSPHOLIPID [Concomitant]
     Active Substance: PHOSPHOLIPID
     Dosage: 1 CAPSULE?LIVER PROTECTION
     Route: 048
     Dates: start: 2022
  37. COMPOUND PARACETAMOL AND AMANTADINE HYDROCHLORIDE [Concomitant]
     Dosage: 1 CAPSULE?BRING DOWN A FEVER
     Route: 048
     Dates: start: 20230722, end: 20230723

REACTIONS (3)
  - Blood bilirubin increased [Recovering/Resolving]
  - Anaemia [Recovering/Resolving]
  - Hyperglycaemia [Recovered/Resolved]

NARRATIVE: CASE EVENT DATE: 20211124
